FAERS Safety Report 25797314 (Version 2)
Quarter: 2025Q3

REPORT INFORMATION
  Report Type: Spontaneous
  Country: US (occurrence: US)
  Receive Date: 20250912
  Receipt Date: 20250917
  Transmission Date: 20251020
  Serious: Yes (Other)
  Sender: PFIZER
  Company Number: US-PFIZER INC-202500180170

PATIENT
  Sex: Male

DRUGS (3)
  1. LORBRENA [Suspect]
     Active Substance: LORLATINIB
     Indication: Non-small cell lung cancer metastatic
     Route: 048
     Dates: start: 202409, end: 202409
  2. LORBRENA [Suspect]
     Active Substance: LORLATINIB
     Route: 048
     Dates: start: 202409, end: 202410
  3. LORBRENA [Suspect]
     Active Substance: LORLATINIB
     Route: 048
     Dates: start: 202410, end: 202412

REACTIONS (1)
  - Hallucination [Recovered/Resolved]

NARRATIVE: CASE EVENT DATE: 20240901
